FAERS Safety Report 20129788 (Version 1)
Quarter: 2021Q4

REPORT INFORMATION
  Report Type: Spontaneous
  Country: US (occurrence: None)
  Receive Date: 20211129
  Receipt Date: 20211129
  Transmission Date: 20220303
  Serious: Yes (Other)
  Sender: FDA-Public Use
  Company Number: None

PATIENT
  Age: 9 Year
  Sex: Male
  Weight: 28.8 kg

DRUGS (4)
  1. QELBREE [Suspect]
     Active Substance: VILOXAZINE HYDROCHLORIDE
     Indication: Attention deficit hyperactivity disorder
     Dosage: FREQUENCY : DAILY;?
     Route: 048
     Dates: start: 20211009
  2. MIRTAZAPINE [Concomitant]
     Active Substance: MIRTAZAPINE
     Dates: start: 20210225
  3. IMIPRAMINE [Concomitant]
     Active Substance: IMIPRAMINE
     Dates: start: 20210225
  4. CLONIDINE [Concomitant]
     Active Substance: CLONIDINE
     Dates: start: 20210225

REACTIONS (9)
  - Weight decreased [None]
  - Drug ineffective [None]
  - Insomnia [None]
  - Affect lability [None]
  - Aggression [None]
  - Aggression [None]
  - Attention deficit hyperactivity disorder [None]
  - Anxiety [None]
  - Paradoxical drug reaction [None]

NARRATIVE: CASE EVENT DATE: 20211129
